FAERS Safety Report 10832441 (Version 1)
Quarter: 2015Q1

REPORT INFORMATION
  Report Type: Report from Study
  Country: US (occurrence: US)
  Receive Date: 20150219
  Receipt Date: 20150219
  Transmission Date: 20150721
  Serious: No
  Sender: FDA-Public Use
  Company Number: US-ABBVIE-14P-163-1197261-00

PATIENT
  Age: 56 Year
  Sex: Male
  Weight: 127.12 kg

DRUGS (3)
  1. CRESTOR [Concomitant]
     Active Substance: ROSUVASTATIN CALCIUM
     Indication: BLOOD CHOLESTEROL INCREASED
  2. HUMIRA [Suspect]
     Active Substance: ADALIMUMAB
     Dates: start: 20131030
  3. HUMIRA [Suspect]
     Active Substance: ADALIMUMAB
     Indication: PSORIASIS
     Dates: start: 20131023, end: 20131023

REACTIONS (3)
  - Chills [Recovered/Resolved]
  - Pyrexia [Recovered/Resolved]
  - Influenza [Recovered/Resolved]

NARRATIVE: CASE EVENT DATE: 201311
